FAERS Safety Report 7894131-1 (Version None)
Quarter: 2011Q4

REPORT INFORMATION
  Report Type: 
  Country: None (occurrence: None)
  Receive Date: 20111104
  Receipt Date: 20111028
  Transmission Date: 20120403
  Serious: Yes (Hospitalization, Other)
  Sender: FDA-Public Use
  Company Number: PHHY2011FR86382

PATIENT
  Age: 10 Year
  Sex: Male

DRUGS (1)
  1. TOPIRAMATE [Suspect]
     Dosage: 700 MG, UNK

REACTIONS (12)
  - SOMNOLENCE [None]
  - CONFUSIONAL STATE [None]
  - TOXICITY TO VARIOUS AGENTS [None]
  - TOXIC ENCEPHALOPATHY [None]
  - HALLUCINATION, VISUAL [None]
  - PSYCHOMOTOR RETARDATION [None]
  - HYPOTONIA [None]
  - INTENTIONAL OVERDOSE [None]
  - HYPERCHLORAEMIA [None]
  - AGITATION [None]
  - LOGORRHOEA [None]
  - METABOLIC ACIDOSIS [None]
